FAERS Safety Report 8153791-0 (Version None)
Quarter: 2012Q1

REPORT INFORMATION
  Report Type: 
  Country: None (occurrence: None)
  Receive Date: 20120221
  Receipt Date: 20120215
  Transmission Date: 20120608
  Serious: No
  Sender: FDA-Public Use
  Company Number: JP-GLAXOSMITHKLINE-B0780710A

PATIENT
  Age: 68 Year
  Sex: Female

DRUGS (5)
  1. ZYPREXA [Concomitant]
     Route: 048
  2. SEROQUEL [Concomitant]
     Route: 048
     Dates: end: 20120207
  3. LAMICTAL [Suspect]
     Indication: BIPOLAR DISORDER
     Dosage: 100MG PER DAY
     Route: 048
     Dates: start: 20111201, end: 20120207
  4. LITHIUM CARBONATE [Suspect]
     Indication: PRODUCT USED FOR UNKNOWN INDICATION
     Route: 048
     Dates: start: 20111001, end: 20120201
  5. ZOPICOOL [Concomitant]
     Route: 048
     Dates: end: 20120207

REACTIONS (1)
  - RENAL DISORDER [None]
